FAERS Safety Report 4992943-5 (Version None)
Quarter: 2006Q2

REPORT INFORMATION
  Report Type: 
  Country: None (occurrence: None)
  Receive Date: 20060504
  Receipt Date: 20050414
  Transmission Date: 20061013
  Serious: Yes (Hospitalization)
  Sender: FDA-Public Use
  Company Number: US-MERCK-0504USA03140

PATIENT
  Age: 50 Year
  Sex: Male
  Weight: 59 kg

DRUGS (2)
  1. VIOXX [Suspect]
     Indication: ARTHRALGIA
     Route: 048
     Dates: start: 20000901, end: 20040901
  2. VIOXX [Suspect]
     Indication: MYALGIA
     Route: 048
     Dates: start: 20000901, end: 20040901

REACTIONS (8)
  - ADVERSE DRUG REACTION [None]
  - AORTIC VALVE INCOMPETENCE [None]
  - ARTHRALGIA [None]
  - CHEST PAIN [None]
  - CYST [None]
  - MYOCARDIAL INFARCTION [None]
  - OESOPHAGITIS [None]
  - RED BLOOD CELL SEDIMENTATION RATE INCREASED [None]
